FAERS Safety Report 4977633-7 (Version None)
Quarter: 2006Q2

REPORT INFORMATION
  Report Type: 
  Country: None (occurrence: None)
  Receive Date: 20060420
  Receipt Date: 20050819
  Transmission Date: 20061013
  Serious: No
  Sender: FDA-Public Use
  Company Number: US-GLAXOSMITHKLINE-A0570931A

PATIENT
  Age: 47 Year
  Sex: Female

DRUGS (3)
  1. ESKALITH [Suspect]
     Indication: DEPRESSION
     Route: 048
     Dates: end: 20050805
  2. XANAX [Concomitant]
  3. LORTAB [Concomitant]

REACTIONS (1)
  - ALOPECIA [None]
